FAERS Safety Report 6241940-0 (Version None)
Quarter: 2009Q2

REPORT INFORMATION
  Report Type: 
  Country: None (occurrence: None)
  Receive Date: 20090623
  Receipt Date: 20090617
  Transmission Date: 20091009
  Serious: Yes (Hospitalization)
  Sender: FDA-Public Use
  Company Number: ES-MERCK-0906ESP00020

PATIENT
  Sex: Male

DRUGS (3)
  1. SINGULAIR [Suspect]
     Indication: ASTHMA
     Route: 048
  2. BUDESONIDE [Concomitant]
     Indication: ASTHMA
  3. BUDESONIDE [Concomitant]
     Indication: FOOD ALLERGY

REACTIONS (1)
  - ASTHMATIC CRISIS [None]
